FAERS Safety Report 5042746-0 (Version None)
Quarter: 2006Q2

REPORT INFORMATION
  Report Type: 
  Country: None (occurrence: None)
  Receive Date: 20060627
  Receipt Date: 20060620
  Transmission Date: 20061013
  Serious: Yes (Other)
  Sender: FDA-Public Use
  Company Number: DE-2006-015841

PATIENT
  Sex: Female

DRUGS (1)
  1. PETIBELLA 30 (21) (DROSPIRENONE, ETHINYLESTRADIOL) FILM TABLET [Suspect]
     Indication: ORAL CONTRACEPTION

REACTIONS (2)
  - IDIOPATHIC THROMBOCYTOPENIC PURPURA [None]
  - MENORRHAGIA [None]
